FAERS Safety Report 5954120-0 (Version None)
Quarter: 2008Q4

REPORT INFORMATION
  Report Type: 
  Country: None (occurrence: None)
  Receive Date: 20081107
  Receipt Date: 20081107
  Transmission Date: 20090506
  Serious: Yes (Death)
  Sender: FDA-Public Use
  Company Number: None

PATIENT
  Age: 12 Month
  Sex: Female
  Weight: 5.9 kg

DRUGS (6)
  1. VIRAMUNE [Suspect]
     Indication: HIV INFECTION
     Dosage: 60 MILLIGRAMS TWICE A DAY ORALLY
     Route: 048
     Dates: start: 20080703, end: 20080918
  2. RETROVIR [Suspect]
     Indication: HIV INFECTION
     Dosage: 60 MILLIGRAMS TWICE A DAY ORALLY
     Route: 048
     Dates: start: 20080703, end: 20080918
  3. EPIVIR [Suspect]
     Indication: HIV INFECTION
     Dosage: 20 MILLIGRAMS TWICE A DAY ORALLY
     Route: 048
     Dates: start: 20080703, end: 20080918
  4. CEFACLOR [Concomitant]
  5. ACETAMINOPHEN [Concomitant]
  6. COTRIMOXAZOLE [Concomitant]

REACTIONS (3)
  - GRUNTING [None]
  - PNEUMONIA [None]
  - WEIGHT DECREASED [None]
